FAERS Safety Report 9447849 (Version 1)
Quarter: 2013Q3

REPORT INFORMATION
  Report Type: Spontaneous
  Country: TR (occurrence: None)
  Receive Date: 20130805
  Receipt Date: 20130805
  Transmission Date: 20140515
  Serious: Yes (Hospitalization)
  Sender: FDA-Public Use
  Company Number: TR-ALKEM-000116

PATIENT
  Age: 28 Year
  Sex: Male

DRUGS (5)
  1. MYCOPHENOLATE MOFETIL (MYCOPHENOLATE MOFETIL) [Suspect]
     Indication: IMMUNOSUPPRESSION
  2. COLCHICINE [Concomitant]
  3. L-THYROXINE [Concomitant]
  4. DELTACORTRIL [Concomitant]
  5. TACROLIMUS [Concomitant]

REACTIONS (8)
  - Posterior reversible encephalopathy syndrome [None]
  - Headache [None]
  - Vision blurred [None]
  - Nausea [None]
  - Vomiting [None]
  - Speech disorder [None]
  - Cerebral haematoma [None]
  - Opportunistic infection [None]
